FAERS Safety Report 14787954 (Version 1)
Quarter: 2018Q2

REPORT INFORMATION
  Report Type: Spontaneous
  Country: US (occurrence: US)
  Receive Date: 20180422
  Receipt Date: 20180422
  Transmission Date: 20180711
  Serious: No
  Sender: FDA-Public Use
  Company Number: US-DUCHESNAY INC.-2018US002099

PATIENT
  Age: 67 Year
  Sex: Female

DRUGS (1)
  1. OSPHENA [Suspect]
     Active Substance: OSPEMIFENE
     Indication: DYSPAREUNIA
     Dosage: 1 DF, DAILY
     Route: 048
     Dates: start: 201711, end: 20180220

REACTIONS (3)
  - Muscle spasms [Unknown]
  - Dizziness [Unknown]
  - Hot flush [Unknown]
